FAERS Safety Report 25299948 (Version 2)
Quarter: 2025Q2

REPORT INFORMATION
  Report Type: Spontaneous
  Country: RO (occurrence: RO)
  Receive Date: 20250512
  Receipt Date: 20250528
  Transmission Date: 20250716
  Serious: Yes (Death, Other)
  Sender: BRISTOL-MYERS SQUIBB COMPANY
  Company Number: RO-BRISTOL-MYERS SQUIBB COMPANY-2025-065983

PATIENT
  Age: 54 Year
  Sex: Male
  Weight: 96 kg

DRUGS (2)
  1. ELIQUIS [Suspect]
     Active Substance: APIXABAN
     Indication: Thrombophlebitis
     Route: 048
     Dates: start: 2012, end: 202312
  2. SINTROM [Concomitant]
     Active Substance: ACENOCOUMAROL
     Indication: Thrombophlebitis

REACTIONS (2)
  - Colon cancer metastatic [Fatal]
  - Heart rate increased [Unknown]

NARRATIVE: CASE EVENT DATE: 20220101
